FAERS Safety Report 9264224 (Version 4)
Quarter: 2013Q2

REPORT INFORMATION
  Report Type: Spontaneous
  Country: DE (occurrence: DE)
  Receive Date: 20130430
  Receipt Date: 20130626
  Transmission Date: 20140414
  Serious: Yes (Hospitalization)
  Sender: FDA-Public Use
  Company Number: DE-B.I. PHARMACEUTICALS,INC./RIDGEFIELD-2013-DE-01197DE

PATIENT
  Age: 77 Year
  Sex: Female
  Weight: 75 kg

DRUGS (7)
  1. PRADAXA [Suspect]
     Indication: ATRIAL FIBRILLATION
     Dosage: 300 MG
     Dates: start: 20130220, end: 20130419
  2. PRADAXA [Suspect]
     Dosage: 220 MG
     Dates: start: 20130422
  3. METOPROLOL [Concomitant]
     Dosage: 95 MG
  4. TORASEMID [Concomitant]
  5. OMEPRAZOL [Concomitant]
     Dosage: 40 MG
  6. BLOPRESS [Concomitant]
     Dosage: 16 MG
  7. TOREM [Concomitant]
     Dosage: 5 MG

REACTIONS (20)
  - Renal failure chronic [Not Recovered/Not Resolved]
  - Tachycardia [Not Recovered/Not Resolved]
  - Oedema peripheral [Not Recovered/Not Resolved]
  - Gamma-glutamyltransferase increased [Not Recovered/Not Resolved]
  - Throat tightness [Not Recovered/Not Resolved]
  - Nausea [Unknown]
  - Stasis dermatitis [Unknown]
  - Renal disorder [Unknown]
  - Hypertension [Unknown]
  - Spinal fracture [Unknown]
  - Respiratory tract congestion [Unknown]
  - Cough [Unknown]
  - Productive cough [Unknown]
  - Alopecia [Unknown]
  - Onychoclasis [Unknown]
  - Asthenia [Unknown]
  - Fatigue [Unknown]
  - Blood creatinine increased [Unknown]
  - Ill-defined disorder [Unknown]
  - Haematoma [Not Recovered/Not Resolved]
